FAERS Safety Report 8470459 (Version 5)
Quarter: 2013Q4

REPORT INFORMATION
  Report Type: Spontaneous
  Country: US (occurrence: US)
  Receive Date: 20120321
  Receipt Date: 20131006
  Transmission Date: 20140711
  Serious: Yes (Other)
  Sender: FDA-Public Use
  Company Number: US-PFIZER INC-2012068956

PATIENT
  Age: 59 Year
  Sex: Male
  Weight: 107 kg

DRUGS (7)
  1. LYRICA [Suspect]
     Indication: INTERVERTEBRAL DISC PROTRUSION
     Dosage: 200 MG, 3X/DAY
     Route: 048
     Dates: start: 1987
  2. LYRICA [Suspect]
     Indication: DIABETIC NEUROPATHY
     Dosage: 200 MG, UNK
  3. LYRICA [Suspect]
     Dosage: 60 MG
  4. LYRICA [Suspect]
     Dosage: 2 DF, DAILY
  5. ACTOS [Concomitant]
     Indication: DIABETES MELLITUS
     Dosage: 10 MG, 2X/DAY
  6. JANUMET [Concomitant]
     Indication: DIABETES MELLITUS
     Dosage: UNK, 2X/DAY
  7. GLIBURIDE/METFORMIN HYDROCHLORIDE [Concomitant]
     Indication: DIABETES MELLITUS
     Dosage: 2.5/500 MG, UNK

REACTIONS (15)
  - Blood pressure fluctuation [Unknown]
  - Diabetes mellitus [Unknown]
  - Arthropathy [Unknown]
  - Colitis [Unknown]
  - Large intestinal obstruction [Unknown]
  - Hallucination [Unknown]
  - Confusional state [Unknown]
  - Pain [Unknown]
  - Drug administration error [Unknown]
  - Insomnia [Unknown]
  - Constipation [Unknown]
  - Back pain [Unknown]
  - Headache [Unknown]
  - Visual impairment [Unknown]
  - Palpitations [Unknown]
